FAERS Safety Report 8015907-6 (Version None)
Quarter: 2011Q4

REPORT INFORMATION
  Report Type: 
  Country: None (occurrence: None)
  Receive Date: 20111230
  Receipt Date: 20111123
  Transmission Date: 20120403
  Serious: Yes (Hospitalization)
  Sender: FDA-Public Use
  Company Number: CN-NOVOPROD-340247

PATIENT

DRUGS (1)
  1. NOVOLOG MIX 70/30 [Suspect]
     Indication: TYPE 2 DIABETES MELLITUS
     Dosage: 14 U IN THE MORNING,14U IN THE EVENING
     Dates: start: 20080101

REACTIONS (7)
  - PAIN [None]
  - HYPOAESTHESIA [None]
  - BLOOD GLUCOSE INCREASED [None]
  - VISION BLURRED [None]
  - BLOOD GLUCOSE ABNORMAL [None]
  - DIZZINESS [None]
  - DIABETES MELLITUS INADEQUATE CONTROL [None]
